FAERS Safety Report 19172159 (Version 2)
Quarter: 2021Q2

REPORT INFORMATION
  Report Type: Report from Study
  Country: None (occurrence: US)
  Receive Date: 20210423
  Receipt Date: 20210618
  Transmission Date: 20210717
  Serious: Yes (Hospitalization)
  Sender: FDA-Public Use
  Company Number: US-ABBVIE-21K-163-3805087-00

PATIENT
  Age: 73 Year
  Sex: Male
  Weight: 93.07 kg

DRUGS (4)
  1. MODERNA COVID?19 VACCINE [Suspect]
     Active Substance: CX-024414
     Dosage: MANUFACTURED: MODERNA
     Route: 030
     Dates: start: 20210411, end: 20210411
  2. HUMIRA [Suspect]
     Active Substance: ADALIMUMAB
     Dosage: CF
     Route: 058
     Dates: start: 20210416, end: 2021
  3. MODERNA COVID?19 VACCINE [Suspect]
     Active Substance: CX-024414
     Indication: COVID-19 IMMUNISATION
     Route: 030
     Dates: start: 20210301, end: 20210301
  4. HUMIRA [Suspect]
     Active Substance: ADALIMUMAB
     Indication: HIDRADENITIS
     Dosage: CF
     Route: 058
     Dates: start: 201907, end: 202103

REACTIONS (25)
  - Immunodeficiency [Not Recovered/Not Resolved]
  - Pyrexia [Recovered/Resolved]
  - External ear pain [Recovered/Resolved]
  - Asthenia [Unknown]
  - Eye swelling [Recovered/Resolved]
  - Skin fissures [Recovered/Resolved]
  - Swelling [Recovered/Resolved]
  - Asthenia [Recovered/Resolved]
  - Herpes zoster [Unknown]
  - Pruritus [Not Recovered/Not Resolved]
  - Ear infection [Recovering/Resolving]
  - Eye swelling [Recovered/Resolved]
  - Ear disorder [Recovering/Resolving]
  - Ear haemorrhage [Recovering/Resolving]
  - Subcutaneous abscess [Recovered/Resolved]
  - Swelling face [Recovered/Resolved]
  - Swelling [Recovering/Resolving]
  - External ear cellulitis [Unknown]
  - Dry skin [Recovering/Resolving]
  - Pain [Recovered/Resolved]
  - Otorrhoea [Recovered/Resolved]
  - Discharge [Unknown]
  - Ear lobe infection [Recovered/Resolved]
  - Chills [Recovered/Resolved]
  - Chills [Recovering/Resolving]

NARRATIVE: CASE EVENT DATE: 2021
